FAERS Safety Report 5637778-5 (Version None)
Quarter: 2008Q1

REPORT INFORMATION
  Report Type: 
  Country: None (occurrence: None)
  Receive Date: 20080219
  Receipt Date: 20080201
  Transmission Date: 20080703
  Serious: Yes (Other)
  Sender: FDA-Public Use
  Company Number: 2008S1001421

PATIENT
  Age: 62 Year
  Sex: Female

DRUGS (6)
  1. FENTANYL TRANSDERMAL SYSTEM [Suspect]
     Indication: FIBROMYALGIA
     Dosage: 25 UG/HR; EVERY 3 DAYS; TRANSDERMAL
     Route: 062
     Dates: start: 20071101, end: 20080120
  2. WARFARIN SODIUM [Concomitant]
  3. FLECAINIDE ACETATE [Concomitant]
  4. DIAZEPAM [Concomitant]
  5. XANAX [Concomitant]
  6. VICODIN [Concomitant]

REACTIONS (11)
  - AMNESIA [None]
  - ASTHENIA [None]
  - CHILLS [None]
  - DIARRHOEA [None]
  - HALLUCINATION [None]
  - NAUSEA [None]
  - NIGHT SWEATS [None]
  - OFF LABEL USE [None]
  - SNEEZING [None]
  - TREATMENT NONCOMPLIANCE [None]
  - WITHDRAWAL SYNDROME [None]
